FAERS Safety Report 13926138 (Version 1)
Quarter: 2017Q3

REPORT INFORMATION
  Report Type: Spontaneous
  Country: JP (occurrence: JP)
  Receive Date: 20170831
  Receipt Date: 20170831
  Transmission Date: 20171127
  Serious: Yes (Other)
  Sender: FDA-Public Use
  Company Number: JP-PFIZER INC-2017370166

PATIENT

DRUGS (1)
  1. ZYVOX [Suspect]
     Active Substance: LINEZOLID
     Indication: GASTROENTERITIS STAPHYLOCOCCAL
     Dosage: UNK
     Route: 048

REACTIONS (3)
  - Hypoaesthesia [Unknown]
  - Altered state of consciousness [Unknown]
  - Vomiting [Unknown]
